FAERS Safety Report 18313572 (Version 3)
Quarter: 2020Q4

REPORT INFORMATION
  Report Type: Spontaneous
  Country: US (occurrence: US)
  Receive Date: 20200925
  Receipt Date: 20201201
  Transmission Date: 20210113
  Serious: Yes (Death)
  Sender: FDA-Public Use
  Company Number: US-TEVA-2020-US-1831734

PATIENT
  Sex: Female

DRUGS (16)
  1. IBUPROFEN. [Concomitant]
     Active Substance: IBUPROFEN
     Indication: PAIN
     Dosage: DOSAGE: 800MILLIGRAM, AS NEEDED
     Dates: start: 200910, end: 20200505
  2. BELSOMRA [Concomitant]
     Active Substance: SUVOREXANT
     Indication: INSOMNIA
     Dosage: DOSAGE: 20MILLIGRAM, AS NEEDED
     Dates: start: 201902, end: 20200505
  3. GENERIC PRILOSEC [Concomitant]
     Active Substance: OMEPRAZOLE MAGNESIUM
     Indication: GASTROOESOPHAGEAL REFLUX DISEASE
     Dosage: 40 MILLIGRAM, DAILY
     Dates: start: 2010, end: 20200505
  4. XANAX [Concomitant]
     Active Substance: ALPRAZOLAM
     Indication: ANXIETY
  5. GENERIC TYLENOL [Concomitant]
     Indication: HEADACHE
     Dosage: AS NEEDED
     Dates: start: 1990, end: 1990
  6. VALSARTAN W/HYDROCHLOROTHIAZIDE TEVA [Suspect]
     Active Substance: HYDROCHLOROTHIAZIDE\VALSARTAN
     Indication: HYPERTENSION
     Dosage: DOSAGE: 12.5 MILLIGRAM
     Route: 065
     Dates: start: 20121020, end: 20141209
  7. DIOVAN HCT [Suspect]
     Active Substance: HYDROCHLOROTHIAZIDE\VALSARTAN
     Dosage: DOSAGE: 160-12.5MG??DIOVAN HCT NOVARTIS
     Route: 065
  8. NEXIUM [Concomitant]
     Active Substance: ESOMEPRAZOLE MAGNESIUM
     Indication: GASTROOESOPHAGEAL REFLUX DISEASE
     Dosage: DOSAGE: 40MILLIGRAM, AS NEEDED
     Dates: start: 1990, end: 20200505
  9. PROCHLORPERAZINE. [Concomitant]
     Active Substance: PROCHLORPERAZINE
     Indication: ANXIETY
  10. VALSARTAN/HYDROCHLOROTHIAZIDE AUROBINDO [Suspect]
     Active Substance: HYDROCHLOROTHIAZIDE\VALSARTAN
     Indication: HYPERTENSION
     Dosage: DOSAGE: 12.5MILLIGRAMS
     Route: 065
     Dates: start: 20150710, end: 20190116
  11. ALPRAZOLAM. [Concomitant]
     Active Substance: ALPRAZOLAM
     Indication: ANXIETY
     Dosage: DOSAGE: 0.5 MILLIGRAM, AS NEEDED
     Dates: start: 1990, end: 20200505
  12. PROCHLORPERAZINE. [Concomitant]
     Active Substance: PROCHLORPERAZINE
     Indication: NAUSEA
     Dosage: DOSAGE: 10MILLIGRAM. AS NEEDED
     Dates: start: 201901, end: 20200505
  13. IBUPROFEN. [Concomitant]
     Active Substance: IBUPROFEN
     Indication: HEADACHE
     Dosage: AS NEEDED
     Dates: start: 1990, end: 20200505
  14. SYNTHROID [Concomitant]
     Active Substance: LEVOTHYROXINE SODIUM
     Indication: HYPOTHYROIDISM
     Dosage: DOSAGE: 137MICROGRAM, DAILY
     Dates: start: 1990, end: 20200505
  15. ONDANSETRON [Concomitant]
     Active Substance: ONDANSETRON
     Indication: NAUSEA
     Dosage: DOSAGE: 4 MILLIGRAM, AS NEEDED
     Dates: start: 201911, end: 20200505
  16. METOPROLOL. [Concomitant]
     Active Substance: METOPROLOL
     Indication: HYPERTENSION
     Dosage: DOSAGE: 50 MILLIGRAM, DAILY
     Dates: start: 201903, end: 20200505

REACTIONS (1)
  - Colon cancer [Fatal]
